FAERS Safety Report 6819043-3 (Version None)
Quarter: 2010Q3

REPORT INFORMATION
  Report Type: 
  Country: None (occurrence: None)
  Receive Date: 20100707
  Receipt Date: 20100622
  Transmission Date: 20110219
  Serious: Yes (Other)
  Sender: FDA-Public Use
  Company Number: US-JNJFOC-20100700657

PATIENT
  Sex: Female

DRUGS (3)
  1. CHILDREN'S TYLENOL SUSPENSION [Suspect]
     Route: 048
  2. CHILDREN'S TYLENOL SUSPENSION [Suspect]
     Indication: PAIN
     Route: 048
  3. CHILDREN'S BENADRYL ALLERGY [Suspect]
     Indication: PRURITUS
     Route: 048

REACTIONS (3)
  - PNEUMONIA [None]
  - PRODUCT QUALITY ISSUE [None]
  - RESPIRATORY SYNCYTIAL VIRUS INFECTION [None]
